FAERS Safety Report 20472677 (Version 1)
Quarter: 2022Q1

REPORT INFORMATION
  Report Type: Spontaneous
  Country: ES (occurrence: ES)
  Receive Date: 20220215
  Receipt Date: 20220215
  Transmission Date: 20220424
  Serious: Yes (Other)
  Sender: FDA-Public Use
  Company Number: ES-CADILA HEALTHCARE LIMITED-ES-ZYDUS-074794

PATIENT

DRUGS (3)
  1. AMLODIPINE [Suspect]
     Active Substance: AMLODIPINE BESYLATE
     Indication: Hypertension
     Dosage: UNK
     Route: 065
  2. RIVAROXABAN [Concomitant]
     Active Substance: RIVAROXABAN
     Indication: Atrial fibrillation
     Dosage: UNK
     Route: 065
  3. SIMVASTATIN [Concomitant]
     Active Substance: SIMVASTATIN
     Indication: Dyslipidaemia
     Dosage: UNK
     Route: 065

REACTIONS (9)
  - Metabolic acidosis [Unknown]
  - Neurological decompensation [Unknown]
  - Haemodynamic instability [Unknown]
  - Cardiac dysfunction [Unknown]
  - Acute kidney injury [Unknown]
  - Shock [Unknown]
  - Haemorrhage [Unknown]
  - Multiple organ dysfunction syndrome [Unknown]
  - Somnolence [Unknown]
